FAERS Safety Report 8433181-3 (Version None)
Quarter: 2012Q2

REPORT INFORMATION
  Report Type: 
  Country: None (occurrence: None)
  Receive Date: 20120613
  Receipt Date: 20120604
  Transmission Date: 20120825
  Serious: Yes (Death)
  Sender: FDA-Public Use
  Company Number: JP-GLAXOSMITHKLINE-B0631689A

PATIENT
  Sex: Female

DRUGS (6)
  1. DOXORUBICIN HYDROCHLORIDE [Concomitant]
  2. PREDNISOLONE [Concomitant]
     Route: 065
  3. LAMIVUDINE (EPIVIR HBV) [Suspect]
     Indication: ANTIVIRAL PROPHYLAXIS
     Dosage: 100MG PER DAY
     Route: 048
     Dates: start: 20020101, end: 20091201
  4. RITUXAN [Suspect]
     Indication: LYMPHOMA
     Dates: start: 20020901, end: 20090901
  5. ONCOVIN [Concomitant]
  6. CYCLOPHOSPHAMIDE [Concomitant]
     Route: 065

REACTIONS (13)
  - HEPATIC FAILURE [None]
  - HEPATITIS B [None]
  - HEPATIC ENZYME INCREASED [None]
  - DECREASED APPETITE [None]
  - HEPATIC ATROPHY [None]
  - BLOOD BILIRUBIN INCREASED [None]
  - HEPATIC ENCEPHALOPATHY [None]
  - DRUG RESISTANCE [None]
  - JAUNDICE [None]
  - MALAISE [None]
  - HEPATITIS FULMINANT [None]
  - ASPARTATE AMINOTRANSFERASE INCREASED [None]
  - ALANINE AMINOTRANSFERASE INCREASED [None]
